FAERS Safety Report 4521010-X (Version None)
Quarter: 2004Q4

REPORT INFORMATION
  Report Type: 
  Country: None (occurrence: None)
  Receive Date: 20041206
  Receipt Date: 20041124
  Transmission Date: 20050328
  Serious: Yes (Other)
  Sender: FDA-Public Use
  Company Number: DE-2004-035626

PATIENT
  Sex: Female

DRUGS (1)
  1. MIRENA [Suspect]
     Dosage: 20 UG/DAY, CONT, INTRA-UTERINE
     Route: 015
     Dates: start: 20030614

REACTIONS (3)
  - ABDOMINAL PAIN [None]
  - BLOOD HUMAN CHORIONIC GONADOTROPIN INCREASED [None]
  - VAGINAL HAEMORRHAGE [None]
